FAERS Safety Report 8210414-X (Version None)
Quarter: 2012Q1

REPORT INFORMATION
  Report Type: 
  Country: None (occurrence: None)
  Receive Date: 20120314
  Receipt Date: 20111129
  Transmission Date: 20120608
  Serious: No
  Sender: FDA-Public Use
  Company Number: US-ASTRAZENECA-2011SE52700

PATIENT
  Age: 72 Year
  Sex: Male
  Weight: 181 kg

DRUGS (2)
  1. TOPROL-XL [Suspect]
     Indication: HYPERTENSION
     Route: 048
     Dates: start: 20060101
  2. ZENICAR [Concomitant]

REACTIONS (4)
  - FATIGUE [None]
  - PRURITUS [None]
  - DIZZINESS [None]
  - MUSCLE TWITCHING [None]
